FAERS Safety Report 8672474 (Version 3)
Quarter: 2013Q4

REPORT INFORMATION
  Report Type: Spontaneous
  Country: GB (occurrence: GB)
  Receive Date: 20120719
  Receipt Date: 20131105
  Transmission Date: 20140711
  Serious: Yes (Life-Threatening, Hospitalization, Disabling)
  Sender: FDA-Public Use
  Company Number: GB-009507513-1207GBR003012

PATIENT
  Age: 41 Year
  Sex: 0

DRUGS (8)
  1. ISENTRESS [Suspect]
     Indication: HIV INFECTION
     Dosage: UNK
     Route: 048
     Dates: start: 20110613, end: 20111220
  2. AZASITE [Concomitant]
  3. ETHAMBUTOL HYDROCHLORIDE [Concomitant]
  4. METOCLOPRAMIDE [Concomitant]
  5. PREDNISOLONE [Concomitant]
  6. PYRIDOXINE [Concomitant]
  7. RIFATER [Concomitant]
  8. TRUVADA [Concomitant]
     Dosage: UNK

REACTIONS (3)
  - Bronchiolitis [Not Recovered/Not Resolved]
  - Dyspnoea [Unknown]
  - Interstitial lung disease [Unknown]
